FAERS Safety Report 4781687-0 (Version None)
Quarter: 2005Q3

REPORT INFORMATION
  Report Type: 
  Country: None (occurrence: None)
  Receive Date: 20050928
  Receipt Date: 20050908
  Transmission Date: 20060218
  Serious: Yes (Other)
  Sender: FDA-Public Use
  Company Number: JP-BRISTOL-MYERS SQUIBB COMPANY-13108485

PATIENT
  Age: 23 Year
  Sex: Female

DRUGS (4)
  1. GATIFLOXACIN [Suspect]
     Indication: PNEUMONIA
     Route: 048
     Dates: start: 20050804, end: 20050819
  2. GATIFLOXACIN [Suspect]
     Indication: MUSCLE MASS
     Route: 048
     Dates: start: 20050804, end: 20050819
  3. LOXONIN [Suspect]
     Indication: PYREXIA
     Route: 048
     Dates: start: 20050816, end: 20050817
  4. PREMARIN [Concomitant]
     Indication: OVARIAN FAILURE
     Dates: start: 20050803

REACTIONS (10)
  - ASPARTATE AMINOTRANSFERASE INCREASED [None]
  - BLOOD ALKALINE PHOSPHATASE INCREASED [None]
  - BLOOD LACTATE DEHYDROGENASE INCREASED [None]
  - GAMMA-GLUTAMYLTRANSFERASE INCREASED [None]
  - HEPATIC FUNCTION ABNORMAL [None]
  - PLATELET COUNT DECREASED [None]
  - PYREXIA [None]
  - RASH GENERALISED [None]
  - VIRAL INFECTION [None]
  - WHITE BLOOD CELL COUNT DECREASED [None]
